FAERS Safety Report 7095783-9 (Version None)
Quarter: 2010Q4

REPORT INFORMATION
  Report Type: 
  Country: None (occurrence: None)
  Receive Date: 20101109
  Receipt Date: 20101109
  Transmission Date: 20110411
  Serious: No
  Sender: FDA-Public Use
  Company Number: None

PATIENT
  Sex: Female
  Weight: 52.3 kg

DRUGS (1)
  1. AMPYRA [Suspect]
     Indication: MULTIPLE SCLEROSIS
     Dosage: 1 TAB EVERY 12 HOURS BY MOUTH
     Route: 048
     Dates: start: 20100401, end: 20100901

REACTIONS (3)
  - BALANCE DISORDER [None]
  - FALL [None]
  - TENDON RUPTURE [None]
